FAERS Safety Report 23264550 (Version 1)
Quarter: 2023Q4

REPORT INFORMATION
  Report Type: Report from Study
  Country: DE (occurrence: DE)
  Receive Date: 20231205
  Receipt Date: 20231205
  Transmission Date: 20240109
  Serious: Yes (Hospitalization)
  Sender: FDA-Public Use
  Company Number: DE-JNJFOC-20230863609

PATIENT
  Age: 5 Decade
  Sex: Male

DRUGS (3)
  1. SIMPONI [Suspect]
     Active Substance: GOLIMUMAB
     Indication: Axial spondyloarthritis
     Route: 058
     Dates: start: 20210930
  2. ACEMETACIN [Concomitant]
     Active Substance: ACEMETACIN
     Route: 065
     Dates: start: 20210925
  3. ACEMETACIN [Concomitant]
     Active Substance: ACEMETACIN
     Dosage: 2 DAYS PER WEEK
     Route: 065
     Dates: start: 20220215

REACTIONS (4)
  - Clavicle fracture [Recovered/Resolved]
  - Accident at work [Recovered/Resolved]
  - COVID-19 [Unknown]
  - Influenza like illness [Unknown]

NARRATIVE: CASE EVENT DATE: 20221011
